FAERS Safety Report 19434332 (Version 1)
Quarter: 2021Q2

REPORT INFORMATION
  Report Type: Spontaneous
  Country: US (occurrence: US)
  Receive Date: 20210617
  Receipt Date: 20210617
  Transmission Date: 20210717
  Serious: No
  Sender: FDA-Public Use
  Company Number: US-ROCHE-2599953

PATIENT

DRUGS (1)
  1. ACTEMRA [Suspect]
     Active Substance: TOCILIZUMAB
     Indication: GIANT CELL ARTERITIS
     Dosage: ACTEMRA AUTO?INJECT 162MG/0.9ML
     Route: 058
     Dates: start: 20200422

REACTIONS (3)
  - Medication error [Unknown]
  - No adverse event [Unknown]
  - Accidental exposure to product [Unknown]
